FAERS Safety Report 20541319 (Version 1)
Quarter: 2022Q1

REPORT INFORMATION
  Report Type: Spontaneous
  Country: CN (occurrence: CN)
  Receive Date: 20220302
  Receipt Date: 20220302
  Transmission Date: 20220423
  Serious: Yes (Other)
  Sender: FDA-Public Use
  Company Number: CN-PFIZER INC-202200316831

PATIENT
  Age: 38 Year
  Sex: Male
  Weight: 55 kg

DRUGS (2)
  1. RAPAMUNE [Suspect]
     Active Substance: SIROLIMUS
     Indication: Therapeutic procedure
     Dosage: 1 MG, 1X/DAY
     Route: 048
     Dates: start: 20220107, end: 20220121
  2. TACROLIMUS [Concomitant]
     Active Substance: TACROLIMUS
     Indication: Therapeutic procedure
     Dosage: 2.5 MG, 2X/DAY
     Route: 048
     Dates: start: 20211230, end: 20220121

REACTIONS (1)
  - Mouth ulceration [Recovered/Resolved]

NARRATIVE: CASE EVENT DATE: 20220109
